FAERS Safety Report 4883385-1 (Version None)
Quarter: 2006Q1

REPORT INFORMATION
  Report Type: 
  Country: None (occurrence: None)
  Receive Date: 20060113
  Receipt Date: 20060105
  Transmission Date: 20060701
  Serious: Yes (Hospitalization)
  Sender: FDA-Public Use
  Company Number: S04-FRA-03963-02

PATIENT
  Age: 7 Day
  Sex: Female

DRUGS (2)
  1. CITALOPRAM HYDROBROMIDE [Suspect]
     Dates: start: 20031115, end: 20040717
  2. EUPHYTOSE [Suspect]
     Dates: start: 20020615

REACTIONS (8)
  - DRUG EXPOSURE BEFORE PREGNANCY [None]
  - FEVER NEONATAL [None]
  - HAEMORRHAGE INTRACRANIAL [None]
  - HYDROCEPHALUS [None]
  - INFECTION [None]
  - MENINGORRHAGIA [None]
  - NEONATAL DISORDER [None]
  - THROMBOCYTHAEMIA [None]
